FAERS Safety Report 5361550-7 (Version None)
Quarter: 2007Q2

REPORT INFORMATION
  Report Type: 
  Country: None (occurrence: None)
  Receive Date: 20070619
  Receipt Date: 20070613
  Transmission Date: 20071010
  Serious: Yes (Other)
  Sender: FDA-Public Use
  Company Number: PHBS2007MX09971

PATIENT
  Age: 10 Year
  Sex: Female

DRUGS (1)
  1. TORECAN [Suspect]
     Indication: VOMITING
     Route: 048
     Dates: start: 20070601

REACTIONS (5)
  - DYSKINESIA [None]
  - EXCESSIVE EYE BLINKING [None]
  - HYPOAESTHESIA FACIAL [None]
  - MUSCLE CONTRACTURE [None]
  - OCULOGYRATION [None]
